FAERS Safety Report 20309002 (Version 2)
Quarter: 2022Q1

REPORT INFORMATION
  Report Type: Spontaneous
  Country: CN (occurrence: None)
  Receive Date: 20220107
  Receipt Date: 20220117
  Transmission Date: 20220423
  Serious: Yes (Other)
  Sender: FDA-Public Use
  Company Number: 2022A004498

PATIENT
  Age: 15804 Day
  Sex: Male
  Weight: 90 kg

DRUGS (3)
  1. EXENATIDE [Suspect]
     Active Substance: EXENATIDE
     Indication: Diabetes mellitus
     Route: 058
     Dates: start: 20211227, end: 20211227
  2. .ALPHA.-LIPOIC ACID [Concomitant]
     Active Substance: .ALPHA.-LIPOIC ACID
     Indication: Diabetes mellitus
     Route: 041
     Dates: start: 20211227, end: 20211230
  3. KALLIDINOGENASE [Concomitant]
     Active Substance: KALLIDINOGENASE
     Indication: Diabetes mellitus
     Route: 048
     Dates: start: 20211227, end: 20211230

REACTIONS (4)
  - Tremor [Recovering/Resolving]
  - Confusional state [Recovering/Resolving]
  - Heart rate increased [Unknown]
  - Hyperhidrosis [Recovering/Resolving]

NARRATIVE: CASE EVENT DATE: 20211227
